FAERS Safety Report 11956672 (Version 1)
Quarter: 2016Q1

REPORT INFORMATION
  Report Type: Spontaneous
  Country: US (occurrence: US)
  Receive Date: 20160126
  Receipt Date: 20160126
  Transmission Date: 20160526
  Serious: No
  Sender: FDA-Public Use
  Company Number: US-SHIRE-US201600790

PATIENT
  Sex: Female

DRUGS (1)
  1. NATPARA (PARATHYROID HORMONE) [Suspect]
     Active Substance: PARATHYROID HORMONE
     Indication: THYROID CANCER
     Dosage: 50 ?G, 1X/DAY:QD
     Route: 058
     Dates: start: 201512

REACTIONS (3)
  - Memory impairment [Unknown]
  - Off label use [Unknown]
  - Asthenia [Unknown]
